FAERS Safety Report 22284840 (Version 1)
Quarter: 2023Q2

REPORT INFORMATION
  Report Type: Spontaneous
  Country: US (occurrence: None)
  Receive Date: 20230503
  Receipt Date: 20230503
  Transmission Date: 20230721
  Serious: No
  Sender: FDA-Public Use
  Company Number: None

PATIENT
  Age: 16 Year
  Sex: Male
  Weight: 61.5 kg

DRUGS (1)
  1. METHYLPHENIDATE [Suspect]
     Active Substance: METHYLPHENIDATE
     Indication: Attention deficit hyperactivity disorder
     Dosage: FREQUENCY : DAILY;?
     Route: 062
     Dates: start: 20230211, end: 20230412

REACTIONS (7)
  - Drug ineffective [None]
  - Impulsive behaviour [None]
  - Condition aggravated [None]
  - Disturbance in attention [None]
  - Product substitution issue [None]
  - Insurance issue [None]
  - Nervousness [None]
